FAERS Safety Report 6805134-X (Version None)
Quarter: 2010Q2

REPORT INFORMATION
  Report Type: 
  Country: None (occurrence: None)
  Receive Date: 20100628
  Receipt Date: 20070910
  Transmission Date: 20101027
  Serious: No
  Sender: FDA-Public Use
  Company Number: US-PFIZER INC-2007067198

PATIENT
  Sex: Female
  Weight: 41.73 kg

DRUGS (11)
  1. XALATAN [Suspect]
     Indication: GLAUCOMA
     Dates: start: 20020101
  2. SYNTHROID [Concomitant]
  3. BENAZEPRIL HYDROCHLORIDE [Concomitant]
     Indication: HYPERTENSION
  4. HYDROCHLOROTHIAZIDE [Concomitant]
  5. POTASSIUM [Concomitant]
  6. IBUPROFEN [Concomitant]
  7. VITAMINS [Concomitant]
  8. TYLENOL [Concomitant]
  9. BILBERRY [Concomitant]
  10. OSCAL [Concomitant]
  11. FOSAMAX [Concomitant]

REACTIONS (3)
  - DEPOSIT EYE [None]
  - MUSCLE SPASMS [None]
  - SPINAL COLUMN STENOSIS [None]
